FAERS Safety Report 24995857 (Version 1)
Quarter: 2025Q1

REPORT INFORMATION
  Report Type: Spontaneous
  Country: CN (occurrence: CN)
  Receive Date: 20250221
  Receipt Date: 20250221
  Transmission Date: 20250409
  Serious: Yes (Hospitalization)
  Sender: NOVARTIS
  Company Number: CN-002147023-NVSC2025CN027595

PATIENT
  Age: 81 Year
  Sex: Male

DRUGS (2)
  1. CARBAMAZEPINE [Suspect]
     Active Substance: CARBAMAZEPINE
     Indication: Trigeminal neuralgia
     Dosage: 200 MG, BID
     Route: 048
     Dates: start: 20241211
  2. CARBAMAZEPINE [Suspect]
     Active Substance: CARBAMAZEPINE
     Dosage: 100 MG, BID
     Route: 048
     Dates: start: 20250116, end: 20250204

REACTIONS (7)
  - Rash [Recovering/Resolving]
  - Drug eruption [Recovering/Resolving]
  - Oropharyngeal pain [Unknown]
  - Erythema [Unknown]
  - Pruritus [Unknown]
  - Mouth ulceration [Recovering/Resolving]
  - Lip ulceration [Recovering/Resolving]

NARRATIVE: CASE EVENT DATE: 20250204
